FAERS Safety Report 6712007-X (Version None)
Quarter: 2010Q2

REPORT INFORMATION
  Report Type: 
  Country: None (occurrence: None)
  Receive Date: 20100505
  Receipt Date: 20100429
  Transmission Date: 20101027
  Serious: Yes (Other)
  Sender: FDA-Public Use
  Company Number: US-PFIZER INC-2006082148

PATIENT
  Sex: Female
  Weight: 70 kg

DRUGS (6)
  1. PROVERA [Suspect]
     Indication: HORMONE REPLACEMENT THERAPY
     Dosage: 10 MG, UNK
     Route: 048
     Dates: start: 19830817, end: 19960701
  2. PROVERA [Suspect]
     Indication: MENOPAUSAL SYMPTOMS
  3. PREMARIN [Suspect]
     Indication: HORMONE REPLACEMENT THERAPY
     Dosage: 1.25 MG, UNK
     Dates: start: 19830817, end: 19960701
  4. PREMARIN [Suspect]
     Indication: MENOPAUSAL SYMPTOMS
  5. PREMPRO [Suspect]
     Indication: HORMONE REPLACEMENT THERAPY
     Dosage: 0.625/2.5 MG
     Dates: start: 19960701, end: 20020701
  6. PREMPRO [Suspect]
     Indication: MENOPAUSAL SYMPTOMS

REACTIONS (1)
  - OVARIAN CANCER [None]
